FAERS Safety Report 21169996 (Version 2)
Quarter: 2022Q3

REPORT INFORMATION
  Report Type: Spontaneous
  Country: JP (occurrence: JP)
  Receive Date: 20220804
  Receipt Date: 20220908
  Transmission Date: 20221027
  Serious: Yes (Other)
  Sender: FDA-Public Use
  Company Number: JP-MSD-M2022-16455

PATIENT
  Age: 75 Year
  Sex: Female

DRUGS (4)
  1. KEYTRUDA [Suspect]
     Active Substance: PEMBROLIZUMAB
     Indication: Renal cell carcinoma stage IV
     Dosage: 200 MILLIGRAM, Q3W
     Route: 041
     Dates: start: 20220413, end: 20220607
  2. LENVATINIB MESYLATE [Suspect]
     Active Substance: LENVATINIB MESYLATE
     Indication: Renal cell carcinoma stage IV
     Dosage: 20 MILLIGRAM, QD
     Route: 048
     Dates: start: 20220413, end: 20220427
  3. LENVATINIB MESYLATE [Suspect]
     Active Substance: LENVATINIB MESYLATE
     Dosage: 14 MILLIGRAM, QD
     Route: 048
     Dates: start: 20220513, end: 20220527
  4. LENVATINIB MESYLATE [Suspect]
     Active Substance: LENVATINIB MESYLATE
     Dosage: 10 MILLIGRAM
     Route: 048
     Dates: start: 202206, end: 20220628

REACTIONS (9)
  - Immune-mediated hypothyroidism [Recovered/Resolved]
  - Immune-mediated renal disorder [Not Recovered/Not Resolved]
  - Palmar-plantar erythrodysaesthesia syndrome [Recovering/Resolving]
  - Rash [Recovered/Resolved]
  - Proteinuria [Recovered/Resolved]
  - Fatigue [Recovered/Resolved]
  - Hypertension [Recovered/Resolved]
  - Rash [Recovered/Resolved]
  - Proteinuria [Recovered/Resolved]

NARRATIVE: CASE EVENT DATE: 20220401
